FAERS Safety Report 5991269-0 (Version None)
Quarter: 2008Q4

REPORT INFORMATION
  Report Type: 
  Country: None (occurrence: None)
  Receive Date: 20081202
  Receipt Date: 20080207
  Transmission Date: 20090506
  Serious: Yes (Other)
  Sender: FDA-Public Use
  Company Number: WAES 0802USA01625

PATIENT
  Age: 54 Year
  Sex: Female

DRUGS (2)
  1. FOSAMAX [Suspect]
     Indication: RESORPTION BONE INCREASED
     Dosage: PO
     Route: 048
     Dates: start: 20051101, end: 20070101
  2. FOSAMAX PLUS D [Suspect]
     Indication: RESORPTION BONE INCREASED
     Dosage: PO
     Route: 048
     Dates: start: 20051101, end: 20070101

REACTIONS (3)
  - ACTINOMYCOSIS [None]
  - OSTEOMYELITIS [None]
  - OSTEONECROSIS [None]
